FAERS Safety Report 8890591 (Version 2)
Quarter: 2013Q1

REPORT INFORMATION
  Report Type: Spontaneous
  Country: US (occurrence: US)
  Receive Date: 20121106
  Receipt Date: 20130228
  Transmission Date: 20140127
  Serious: Yes (Disabling)
  Sender: FDA-Public Use
  Company Number: US-009507513-1211USA000741

PATIENT
  Sex: Female

DRUGS (3)
  1. ALENDRONATE SODIUM [Suspect]
     Dosage: 5 MG, QD
     Route: 048
     Dates: start: 201105, end: 201109
  2. LEVOTHYROXINE SODIUM [Concomitant]
     Dosage: UNK, QD
     Route: 048
     Dates: start: 201102, end: 201108
  3. DICLOFENAC [Concomitant]
     Dosage: 1 DF, QD
     Route: 048
     Dates: start: 1993

REACTIONS (3)
  - Abasia [Unknown]
  - Drug hypersensitivity [Unknown]
  - Malaise [Unknown]
